FAERS Safety Report 22077312 (Version 1)
Quarter: 2023Q1

REPORT INFORMATION
  Report Type: Spontaneous
  Country: EG (occurrence: EG)
  Receive Date: 20230309
  Receipt Date: 20230309
  Transmission Date: 20230417
  Serious: Yes (Death, Hospitalization, Other)
  Sender: FDA-Public Use
  Company Number: EG-SA-SAC20230307000652

PATIENT
  Age: 65 Year
  Sex: Female
  Weight: 90 kg

DRUGS (9)
  1. ENOXAPARIN SODIUM [Suspect]
     Active Substance: ENOXAPARIN SODIUM
     Indication: Thrombosis prophylaxis
     Dosage: 40 IU SC /24HR ONCE DAILY FOR 13 DAY
     Route: 058
  2. HEPARIN [Suspect]
     Active Substance: HEPARIN SODIUM
     Dosage: 2.5 MG, QD
     Dates: start: 20230121, end: 20230122
  3. CEFEPIME [Concomitant]
     Active Substance: CEFEPIME HYDROCHLORIDE
     Dosage: 2 G, TID
  4. FLUCONAZOLE [Concomitant]
     Active Substance: FLUCONAZOLE
     Dosage: VIAL/24HR
  5. LINEZOLID [Concomitant]
     Active Substance: LINEZOLID
     Dosage: LINEZOLID 600 VIAL /12 HRS
  6. OFLOXACIN [Concomitant]
     Active Substance: OFLOXACIN
     Dosage: 400 MG TABLET /12 HRS
  7. ASPIRIN [Concomitant]
     Active Substance: ASPIRIN
     Dosage: 75 MG, QD
  8. CLINDAMYCIN [Concomitant]
     Active Substance: CLINDAMYCIN
     Dosage: 600 IV /8HRS
  9. LEVOTHYROXINE [Concomitant]
     Active Substance: LEVOTHYROXINE
     Dosage: 100 MG/24 HRS

REACTIONS (6)
  - Pyrexia [Fatal]
  - Altered state of consciousness [Fatal]
  - Ischaemic stroke [Fatal]
  - Extravasation [Fatal]
  - Necrosis [Fatal]
  - Rash macular [Fatal]

NARRATIVE: CASE EVENT DATE: 20230105
